FAERS Safety Report 7860205-4 (Version None)
Quarter: 2011Q4

REPORT INFORMATION
  Report Type: 
  Country: None (occurrence: None)
  Receive Date: 20111027
  Receipt Date: 20111019
  Transmission Date: 20120403
  Serious: Yes (Other)
  Sender: FDA-Public Use
  Company Number: DE-ROCHE-1007043

PATIENT
  Sex: Male

DRUGS (2)
  1. INTERFERON ALFA [Suspect]
     Indication: MALIGNANT MELANOMA
     Dosage: 3 MIO IU
     Route: 065
  2. INTERFERON ALFA [Suspect]
     Dates: start: 20111001

REACTIONS (2)
  - PULMONARY EMBOLISM [None]
  - DYSPNOEA [None]
